FAERS Safety Report 11251312 (Version 1)
Quarter: 2015Q3

REPORT INFORMATION
  Report Type: Spontaneous
  Country: US (occurrence: US)
  Receive Date: 20150708
  Receipt Date: 20150708
  Transmission Date: 20151125
  Serious: No
  Sender: FDA-Public Use
  Company Number: US-ELI_LILLY_AND_COMPANY-US201111002213

PATIENT
  Age: 55 Year
  Sex: Female

DRUGS (6)
  1. GEMZAR [Suspect]
     Active Substance: GEMCITABINE HYDROCHLORIDE
     Indication: PANCREATIC CARCINOMA
     Dosage: UNK, WEEKLY FOR 3 WEEKS, THEN 1 WEEK OFF
     Dates: start: 201104
  2. EMEND [Concomitant]
     Active Substance: APREPITANT
     Dosage: UNK
  3. BENADRYL [Concomitant]
     Active Substance: DIPHENHYDRAMINE HYDROCHLORIDE
     Indication: PREMEDICATION
     Dosage: UNK
     Dates: start: 2011
  4. TAXOTERE [Concomitant]
     Active Substance: DOCETAXEL
     Indication: PANCREATIC CARCINOMA
     Dosage: UNK, WEEKLY FOR 3 WEEKS, THEN 1 WEEK OFF
     Dates: start: 201104
  5. DEXAMETHASONE. [Concomitant]
     Active Substance: DEXAMETHASONE
     Indication: PREMEDICATION
     Dosage: UNK
     Dates: start: 2011
  6. AVASTIN [Concomitant]
     Active Substance: BEVACIZUMAB
     Dosage: UNK
     Dates: start: 2011

REACTIONS (10)
  - Alopecia [Unknown]
  - Ageusia [Unknown]
  - Pruritus [Unknown]
  - Hunger [Unknown]
  - Weight decreased [Unknown]
  - Asthenia [Unknown]
  - Rash [Recovering/Resolving]
  - Dry skin [Unknown]
  - Feeding disorder [Unknown]
  - Dizziness [Unknown]

NARRATIVE: CASE EVENT DATE: 20111003
